FAERS Safety Report 19484226 (Version 2)
Quarter: 2021Q3

REPORT INFORMATION
  Report Type: Spontaneous
  Country: CA (occurrence: CA)
  Receive Date: 20210701
  Receipt Date: 20210811
  Transmission Date: 20211014
  Serious: Yes (Other)
  Sender: FDA-Public Use
  Company Number: CA-PFIZER INC-2021748676

PATIENT
  Age: 63 Year
  Sex: Female

DRUGS (2)
  1. RITUXIMAB. [Suspect]
     Active Substance: RITUXIMAB
     Dosage: 1 G, EVERY 6 MONTHS FOR 2 YRS (DISCONTINUATION DATE UNAVAILABLE)
     Route: 065
  2. RUXIENCE [Suspect]
     Active Substance: RITUXIMAB-PVVR
     Dosage: 1 G, EVERY 6 MONTHS FOR 2 YRS (DISCONTINUATION DATE UNAVAILABLE)

REACTIONS (3)
  - Wound [Unknown]
  - Infection [Unknown]
  - Skin reaction [Unknown]
